FAERS Safety Report 9382506 (Version 2)
Quarter: 2013Q3

REPORT INFORMATION
  Report Type: Spontaneous
  Country: US (occurrence: US)
  Receive Date: 20130703
  Receipt Date: 20130821
  Transmission Date: 20140515
  Serious: No
  Sender: FDA-Public Use
  Company Number: US-TEVA-416404USA

PATIENT
  Age: 29 Year
  Sex: Female
  Weight: 71.73 kg

DRUGS (1)
  1. PARAGARD 380A [Suspect]
     Indication: CONTRACEPTION
     Route: 015
     Dates: start: 20130311, end: 20130628

REACTIONS (2)
  - Dyspareunia [Recovered/Resolved]
  - Device expulsion [Recovered/Resolved]
